FAERS Safety Report 9371216 (Version 1)
Quarter: 2013Q3

REPORT INFORMATION
  Report Type: Spontaneous
  Country: US (occurrence: None)
  Receive Date: 20130626
  Receipt Date: 20130626
  Transmission Date: 20140515
  Serious: Yes (Hospitalization)
  Sender: FDA-Public Use
  Company Number: None

PATIENT
  Age: 31 Year
  Sex: Female
  Weight: 140.62 kg

DRUGS (1)
  1. ENOXAPARIN [Suspect]
     Indication: THROMBOSIS PROPHYLAXIS
     Dosage: 40MG; TWICE/DAY; 057
     Dates: start: 20121130, end: 20121202

REACTIONS (5)
  - Feeling abnormal [None]
  - Chest pain [None]
  - Dyspnoea [None]
  - Gastric disorder [None]
  - Feeling abnormal [None]
